FAERS Safety Report 8230260-0 (Version None)
Quarter: 2012Q1

REPORT INFORMATION
  Report Type: 
  Country: None (occurrence: None)
  Receive Date: 20120321
  Receipt Date: 20120321
  Transmission Date: 20120608
  Serious: Yes (Life-Threatening, Hospitalization)
  Sender: FDA-Public Use
  Company Number: None

PATIENT
  Sex: Female
  Weight: 78.4723 kg

DRUGS (2)
  1. EFFIENT [Suspect]
     Indication: CORONARY ARTERIAL STENT INSERTION
     Dosage: 5 MG PO QD PO
     Route: 048
     Dates: start: 20040101, end: 20120101
  2. EVERY DAY DETOX [Suspect]
     Indication: LIVER DISORDER
     Dosage: 1-2 _____S DAY SL PO
     Route: 048
     Dates: start: 20120301, end: 20120305

REACTIONS (4)
  - COAGULOPATHY [None]
  - WOUND [None]
  - EPISTAXIS [None]
  - HAEMORRHAGE [None]
